FAERS Safety Report 9337564 (Version 2)
Quarter: 2013Q2

REPORT INFORMATION
  Report Type: Report from Study
  Country: US (occurrence: US)
  Receive Date: 20130607
  Receipt Date: 20130620
  Transmission Date: 20140414
  Serious: Yes (Other)
  Sender: FDA-Public Use
  Company Number: US-US-EMD SERONO, INC.-7214672

PATIENT
  Age: 15 Year
  Sex: Male
  Weight: 76 kg

DRUGS (3)
  1. SAIZEN [(SOMATROPIN (RDNA ORIGIN) FOR INJECTION)] [Suspect]
     Indication: GROWTH HORMONE DEFICIENCY
     Dates: start: 20120601, end: 20130219
  2. SYNTHROID [Concomitant]
     Indication: THYROXIN BINDING GLOBULIN DECREASED
  3. SYNTHROID [Concomitant]

REACTIONS (6)
  - Central nervous system mass [Not Recovered/Not Resolved]
  - Blood prolactin increased [Unknown]
  - Polyuria [Not Recovered/Not Resolved]
  - Polydipsia [Not Recovered/Not Resolved]
  - Visual impairment [Unknown]
  - Fatigue [Unknown]
